FAERS Safety Report 5277611-7 (Version None)
Quarter: 2007Q1

REPORT INFORMATION
  Report Type: 
  Country: None (occurrence: None)
  Receive Date: 20070327
  Receipt Date: 20070315
  Transmission Date: 20070707
  Serious: Yes (Hospitalization)
  Sender: FDA-Public Use
  Company Number: US-SANOFI-SYNTHELABO-A03200702159

PATIENT
  Sex: Female

DRUGS (4)
  1. LAMICTAL [Concomitant]
     Route: 048
  2. PAXIL [Concomitant]
     Route: 048
  3. AMBIEN [Suspect]
     Indication: INSOMNIA
     Route: 048
     Dates: start: 20030301, end: 20070316
  4. AMBIEN CR [Suspect]
     Route: 048
     Dates: start: 20060301

REACTIONS (4)
  - BIPOLAR DISORDER [None]
  - DRUG INEFFECTIVE [None]
  - EATING DISORDER [None]
  - SLEEP WALKING [None]
